FAERS Safety Report 12061502 (Version 3)
Quarter: 2016Q2

REPORT INFORMATION
  Report Type: Spontaneous
  Country: US (occurrence: US)
  Receive Date: 20160210
  Receipt Date: 20160428
  Transmission Date: 20160815
  Serious: No
  Sender: FDA-Public Use
  Company Number: US-PFIZER INC-2016025098

PATIENT
  Age: 67 Year
  Sex: Male
  Weight: 86 kg

DRUGS (2)
  1. ZITHROMAX [Suspect]
     Active Substance: AZITHROMYCIN DIHYDRATE
     Indication: SINUSITIS
     Dosage: 500 MG, DAILY 2DF FIRST DAY
     Route: 048
     Dates: start: 20160105, end: 20160105
  2. ZITHROMAX [Suspect]
     Active Substance: AZITHROMYCIN DIHYDRATE
     Indication: NASOPHARYNGITIS
     Dosage: 250 MG, 1X/DAY (1DF FOR 4 DAY)
     Route: 048
     Dates: start: 20160106, end: 20160109

REACTIONS (7)
  - Pruritus [Recovered/Resolved]
  - Burning sensation [Recovered/Resolved]
  - Blister [Recovering/Resolving]
  - Scar [Unknown]
  - Rash generalised [Recovering/Resolving]
  - Swelling [Recovered/Resolved]
  - Activities of daily living impaired [Recovered/Resolved]
